FAERS Safety Report 7548167-0 (Version None)
Quarter: 2011Q2

REPORT INFORMATION
  Report Type: 
  Country: None (occurrence: None)
  Receive Date: 20110524
  Receipt Date: 20110202
  Transmission Date: 20111010
  Serious: No
  Sender: FDA-Public Use
  Company Number: 026750

PATIENT
  Sex: Female
  Weight: 49 kg

DRUGS (5)
  1. ULTRAM [Concomitant]
  2. CIMZIA [Suspect]
     Indication: CROHN'S DISEASE
     Dosage: ONE SHOT SUBCUTANEOUS, 2 SHOTS SUBCUTANEOUS
     Route: 058
     Dates: start: 20110101
  3. CIMZIA [Suspect]
     Indication: CROHN'S DISEASE
     Dosage: ONE SHOT SUBCUTANEOUS, 2 SHOTS SUBCUTANEOUS
     Route: 058
     Dates: start: 20101201
  4. ASACOL [Concomitant]
  5. ATROPINE W/DIPHENOXYLATE [Concomitant]

REACTIONS (1)
  - INJECTION SITE HAEMATOMA [None]
